FAERS Safety Report 13799665 (Version 1)
Quarter: 2017Q3

REPORT INFORMATION
  Report Type: Spontaneous
  Country: US (occurrence: US)
  Receive Date: 20170727
  Receipt Date: 20170727
  Transmission Date: 20171127
  Serious: No
  Sender: FDA-Public Use
  Company Number: US-JNJFOC-20170521167

PATIENT
  Sex: Female
  Weight: 54.43 kg

DRUGS (2)
  1. MENS ROGAINE EXTRA STRENGTH [Suspect]
     Active Substance: MINOXIDIL
     Indication: ALOPECIA
     Dosage: TWO DROPPER ONCE A NIGHT
     Route: 061
     Dates: start: 2016
  2. MENS ROGAINE EXTRA STRENGTH [Suspect]
     Active Substance: MINOXIDIL
     Indication: ALOPECIA
     Dosage: TWO DROPPER ONCE A NIGHT SINCE FROM NOV-2016
     Route: 061
     Dates: start: 201611, end: 2016

REACTIONS (3)
  - Product use issue [Unknown]
  - Off label use [Unknown]
  - Overdose [Unknown]

NARRATIVE: CASE EVENT DATE: 2016
